FAERS Safety Report 13419495 (Version 4)
Quarter: 2022Q3

REPORT INFORMATION
  Report Type: Spontaneous
  Country: US (occurrence: US)
  Receive Date: 20170407
  Receipt Date: 20220913
  Transmission Date: 20221027
  Serious: No
  Sender: FDA-Public Use
  Company Number: US-JNJFOC-20170323599

PATIENT
  Sex: Male

DRUGS (6)
  1. RISPERDAL [Suspect]
     Active Substance: RISPERIDONE
     Indication: Intermittent explosive disorder
     Route: 048
     Dates: start: 20040604, end: 20040608
  2. RISPERDAL [Suspect]
     Active Substance: RISPERIDONE
     Indication: Depression
     Dosage: 0.5 MG MORNING AND 1 MG AT NIGHT.
     Route: 048
     Dates: start: 20040608, end: 20040611
  3. RISPERDAL [Suspect]
     Active Substance: RISPERIDONE
     Indication: Paranoid personality disorder
     Route: 048
     Dates: end: 20041111
  4. RISPERIDONE [Suspect]
     Active Substance: RISPERIDONE
     Indication: Intermittent explosive disorder
     Route: 048
     Dates: start: 20040611, end: 20041109
  5. RISPERIDONE [Suspect]
     Active Substance: RISPERIDONE
     Indication: Depression
  6. RISPERIDONE [Suspect]
     Active Substance: RISPERIDONE
     Indication: Paranoid personality disorder

REACTIONS (2)
  - Gynaecomastia [Unknown]
  - Emotional distress [Unknown]
